FAERS Safety Report 8586031-9 (Version None)
Quarter: 2012Q3

REPORT INFORMATION
  Report Type: 
  Country: None (occurrence: None)
  Receive Date: 20120810
  Receipt Date: 20120803
  Transmission Date: 20120928
  Serious: Yes (Other)
  Sender: FDA-Public Use
  Company Number: JP-VERTEX PHARMACEUTICALS INC.-AE-2012-007235

PATIENT
  Age: 43 Year
  Sex: Male

DRUGS (16)
  1. TELAVIC (TELAPREVIR) [Suspect]
     Route: 048
     Dates: start: 20120412
  2. PEGINTERFERON ALFA-2B [Concomitant]
     Indication: HEPATITIS C
     Route: 058
     Dates: start: 20120315
  3. SENNOSIDE [Concomitant]
     Route: 048
  4. RIBAVIRIN [Concomitant]
     Route: 048
     Dates: start: 20120412, end: 20120418
  5. RIBAVIRIN [Concomitant]
     Route: 048
     Dates: start: 20120523
  6. PEGINTERFERON ALFA-2B [Concomitant]
     Route: 058
  7. RIBAVIRIN [Concomitant]
     Indication: HEPATITIS C
     Route: 048
     Dates: start: 20120315, end: 20120404
  8. MAGMITT [Concomitant]
     Route: 048
  9. ETODOLAC [Concomitant]
     Route: 048
  10. TELAVIC (TELAPREVIR) [Suspect]
     Indication: HEPATITIS C
     Route: 048
     Dates: start: 20120314, end: 20120411
  11. RIBAVIRIN [Concomitant]
     Route: 048
     Dates: start: 20120509, end: 20120522
  12. REBAMIPIDE [Concomitant]
     Route: 048
  13. ANTEBATE [Concomitant]
     Route: 061
     Dates: start: 20120308
  14. RIBAVIRIN [Concomitant]
     Route: 048
     Dates: start: 20120405, end: 20120411
  15. RIBAVIRIN [Concomitant]
     Route: 048
     Dates: start: 20120419, end: 20120502
  16. RIKKUNSHITO [Concomitant]
     Route: 048

REACTIONS (2)
  - HAEMOGLOBIN DECREASED [None]
  - WHITE BLOOD CELL COUNT DECREASED [None]
